FAERS Safety Report 8829956 (Version 3)
Quarter: 2013Q4

REPORT INFORMATION
  Report Type: Report from Study
  Country: CA (occurrence: CA)
  Receive Date: 20121008
  Receipt Date: 20131101
  Transmission Date: 20140711
  Serious: Yes (Life-Threatening, Hospitalization, Other)
  Sender: FDA-Public Use
  Company Number: PHHY2012CA088158

PATIENT
  Age: 57 Year
  Sex: Female

DRUGS (7)
  1. CLOZARIL [Suspect]
     Indication: SCHIZOAFFECTIVE DISORDER
     Dosage: 175 MG, DAILY
     Route: 048
     Dates: start: 20120915, end: 20121002
  2. CLOZARIL [Suspect]
     Dosage: UNK UKN, UNK
     Dates: start: 20130913, end: 20131007
  3. SAPHRIS [Concomitant]
  4. TRAZODONE [Concomitant]
  5. EPIVAL [Concomitant]
     Dosage: 500 MG, BID
  6. MODECATE [Concomitant]
     Dosage: 50 MG,
     Dates: start: 20121017
  7. MODECATE [Concomitant]
     Dosage: 50 UNK, UNK
     Dates: start: 20121020

REACTIONS (22)
  - Generalised oedema [Unknown]
  - Disorientation [Unknown]
  - Dyspnoea [Unknown]
  - Akathisia [Not Recovered/Not Resolved]
  - Agitation [Unknown]
  - Gastroenteritis [Unknown]
  - Pyrexia [Recovered/Resolved]
  - Atrial fibrillation [Recovered/Resolved]
  - Tachyarrhythmia [Unknown]
  - Pulmonary embolism [Unknown]
  - Respiratory distress [Recovered/Resolved]
  - Agranulocytosis [Recovered/Resolved]
  - Neutrophil count decreased [Recovered/Resolved]
  - White blood cell count decreased [Unknown]
  - Anaemia [Recovered/Resolved]
  - Influenza like illness [Unknown]
  - Schizoaffective disorder [Not Recovered/Not Resolved]
  - Cognitive disorder [Not Recovered/Not Resolved]
  - Delirium [Unknown]
  - Borderline personality disorder [Not Recovered/Not Resolved]
  - Abnormal behaviour [Not Recovered/Not Resolved]
  - Cardiac failure [Unknown]
